FAERS Safety Report 8098158-9 (Version None)
Quarter: 2012Q1

REPORT INFORMATION
  Report Type: 
  Country: None (occurrence: None)
  Receive Date: 20120128
  Receipt Date: 20110818
  Transmission Date: 20120608
  Serious: No
  Sender: FDA-Public Use
  Company Number: US-ABBOTT-11P-163-0847676-00

PATIENT
  Age: 72 Year
  Sex: Female

DRUGS (6)
  1. HUMIRA [Suspect]
     Indication: CROHN'S DISEASE
     Dates: start: 20090801
  2. PENTASA [Concomitant]
     Indication: CROHN'S DISEASE
     Dosage: DAILY
  3. MERCAPTOPURINE [Concomitant]
     Indication: CROHN'S DISEASE
     Dosage: DAILY
  4. VERAPAMIL [Concomitant]
     Indication: HYPERTENSION
     Dosage: DAILY
  5. VITAMIN B-12 [Concomitant]
     Indication: VITAMIN B12 DEFICIENCY
     Dosage: MONTHLY
  6. ZOLOFT [Concomitant]
     Indication: DEPRESSION
     Dosage: DAILY

REACTIONS (4)
  - BLOOD CHOLESTEROL INCREASED [None]
  - RASH [None]
  - RASH PAPULAR [None]
  - RASH PRURITIC [None]
